FAERS Safety Report 4759051-X (Version None)
Quarter: 2005Q3

REPORT INFORMATION
  Report Type: 
  Country: None (occurrence: None)
  Receive Date: 20050901
  Receipt Date: 20050830
  Transmission Date: 20060218
  Serious: Yes (Other)
  Sender: FDA-Public Use
  Company Number: CN-GLAXOSMITHKLINE-B0392279A

PATIENT
  Age: 50 Year
  Sex: Male

DRUGS (1)
  1. RELAFEN [Suspect]
     Indication: RHEUMATOID ARTHRITIS
     Dosage: 2TAB TWICE PER DAY
     Route: 065
     Dates: start: 20050826, end: 20050827

REACTIONS (4)
  - LABORATORY TEST ABNORMAL [None]
  - PNEUMONIA [None]
  - PYREXIA [None]
  - RASH [None]
